FAERS Safety Report 8964603 (Version 2)
Quarter: 2013Q1

REPORT INFORMATION
  Report Type: Spontaneous
  Country: JP (occurrence: JP)
  Receive Date: 20121213
  Receipt Date: 20130320
  Transmission Date: 20140127
  Serious: Yes (Death)
  Sender: FDA-Public Use
  Company Number: JP-BAYER-2012-130538

PATIENT
  Age: 87 Year
  Sex: Female

DRUGS (7)
  1. BAYASPIRIN [Suspect]
     Indication: CEREBROVASCULAR ACCIDENT PROPHYLAXIS
     Dosage: 100 MG, QD
     Route: 048
     Dates: end: 20121211
  2. FOSAMAC [Concomitant]
     Dosage: 35 MG, OW
     Route: 048
  3. GASTER D [Concomitant]
     Dosage: 10 MG, UNK
     Route: 048
  4. DIOVAN [Concomitant]
     Dosage: 40 MG, UNK
     Route: 048
  5. CALFINA AMEL [Concomitant]
     Dosage: 0.5 MG, UNK
     Route: 048
  6. DIART [Concomitant]
     Dosage: 15 MG, UNK
     Route: 048
  7. THYRADIN S [Concomitant]
     Dosage: 50 ?G, QD
     Route: 048

REACTIONS (1)
  - Cerebral haemorrhage [Fatal]
